FAERS Safety Report 7318616-1 (Version None)
Quarter: 2011Q1

REPORT INFORMATION
  Report Type: 
  Country: None (occurrence: None)
  Receive Date: 20110228
  Receipt Date: 20110221
  Transmission Date: 20110831
  Serious: Yes (Death)
  Sender: FDA-Public Use
  Company Number: JP-ASTELLAS-2010JP007451

PATIENT
  Sex: Female

DRUGS (9)
  1. FUROSEMIDE [Concomitant]
     Indication: POLYURIA
     Dosage: 40 MG, TID
     Route: 048
     Dates: start: 20101103, end: 20110107
  2. MIYA BM [Concomitant]
     Dosage: 1 G, TID
     Route: 065
     Dates: start: 20100101, end: 20110107
  3. VANCOMYCIN [Concomitant]
     Indication: INFECTION PROPHYLAXIS
     Dosage: 1 G, QID
     Route: 065
     Dates: start: 20100101, end: 20110107
  4. CELL CEPT [Concomitant]
     Indication: PROPHYLAXIS AGAINST TRANSPLANT REJECTION
     Dosage: 500 MG, BID
     Route: 065
     Dates: start: 20101027, end: 20110107
  5. FLUCONAZOLE [Concomitant]
     Indication: INFECTION PROPHYLAXIS
     Dosage: 1 DF, UID/QD
     Route: 048
     Dates: start: 20101103, end: 20110107
  6. PROGRAF [Suspect]
     Indication: PROPHYLAXIS AGAINST TRANSPLANT REJECTION
     Dosage: 0.6 MG, UNKNOWN/D
     Route: 048
     Dates: start: 20101027, end: 20101208
  7. ALDACTONE [Concomitant]
     Indication: POLYURIA
     Dosage: 25 MG, UID/QD
     Route: 065
     Dates: start: 20101103, end: 20110107
  8. LANSOPRAZOLE [Concomitant]
     Indication: ULCER
     Dosage: 15 MG, UID/QD
     Route: 065
     Dates: start: 20101103, end: 20110107
  9. FLAGYL [Concomitant]
     Indication: PSEUDOMEMBRANOUS COLITIS
     Dosage: 500 MG, TID
     Route: 065
     Dates: start: 20100101, end: 20110107

REACTIONS (1)
  - PROGRESSIVE MULTIFOCAL LEUKOENCEPHALOPATHY [None]
